FAERS Safety Report 4486711-0 (Version None)
Quarter: 2004Q4

REPORT INFORMATION
  Report Type: 
  Country: None (occurrence: None)
  Receive Date: 20041021
  Receipt Date: 20041012
  Transmission Date: 20050328
  Serious: Yes (Other)
  Sender: FDA-Public Use
  Company Number: 2004238325GB

PATIENT
  Age: 22 Year
  Sex: Female

DRUGS (2)
  1. MYCOBUTIN [Suspect]
     Indication: PERINEAL ABSCESS
     Dosage: 300 MG, DAILY
  2. CLARITHROMYCIN [Suspect]
     Indication: PERINEAL ABSCESS
     Dosage: 300 MG, DAILY

REACTIONS (3)
  - HYPOPYON [None]
  - IRIDOCYCLITIS [None]
  - VISION BLURRED [None]
